FAERS Safety Report 7472604-3 (Version None)
Quarter: 2011Q2

REPORT INFORMATION
  Report Type: 
  Country: None (occurrence: None)
  Receive Date: 20110511
  Receipt Date: 20110506
  Transmission Date: 20111010
  Serious: Yes (Death, Life-Threatening)
  Sender: FDA-Public Use
  Company Number: BE-BRISTOL-MYERS SQUIBB COMPANY-15241482

PATIENT
  Age: 68 Year
  Sex: Male
  Weight: 70 kg

DRUGS (13)
  1. PEMETREXED DISODIUM [Suspect]
     Indication: HEAD AND NECK CANCER
     Dosage: DAY 1 EVERY 21 DAYS.LAST DOSE ON 27JUL10
     Route: 042
     Dates: start: 20100407
  2. VITAMIN B-12 [Concomitant]
  3. TERRAMYCIN V CAP [Concomitant]
     Indication: EYE INFECTION
     Dates: start: 20100723
  4. MINOCYCLINE [Concomitant]
     Indication: RASH
     Dates: start: 20100421
  5. ZANTAC [Concomitant]
     Dates: start: 20100325
  6. FOLIC ACID [Concomitant]
  7. DEXAMETHASONE [Concomitant]
  8. ERBITUX [Suspect]
     Indication: HEAD AND NECK CANCER
     Dosage: LOADING DOSE ON DAY 1 OF 1 CYCLE,LAST DOSE ON 2AUG10 250 MG/M2 WEEKLY IV-ONG
     Route: 042
     Dates: start: 20100407
  9. FRAXIPARINE [Concomitant]
     Dates: start: 20100629
  10. LYSOMUCIL [Concomitant]
     Dates: start: 20100325
  11. MOTILIUM [Concomitant]
     Dates: start: 20100603
  12. CISPLATIN [Suspect]
     Indication: HEAD AND NECK CANCER
     Dosage: DAY 1 EVERY 21 DAYS.LAST DOSE ON 27JUL10
     Route: 042
     Dates: start: 20100407
  13. ATROVENT [Concomitant]
     Dates: start: 20100527

REACTIONS (2)
  - RESPIRATORY FAILURE [None]
  - SEPTIC SHOCK [None]
